FAERS Safety Report 12751054 (Version 2)
Quarter: 2016Q3

REPORT INFORMATION
  Report Type: Report from Study
  Country: DE (occurrence: DE)
  Receive Date: 20160915
  Receipt Date: 20160926
  Transmission Date: 20161109
  Serious: Yes (Hospitalization)
  Sender: FDA-Public Use
  Company Number: PHHO2016DE013249

PATIENT
  Sex: Female
  Weight: 55.6 kg

DRUGS (7)
  1. DIPIDOLOR [Concomitant]
     Active Substance: PIRITRAMIDE
     Indication: DIVERTICULITIS
     Dosage: 7.5 MG, QD
     Route: 042
     Dates: start: 20160812, end: 20160812
  2. IBUPROFEN. [Concomitant]
     Active Substance: IBUPROFEN
     Indication: PSORIASIS
     Dosage: 500 MG, (ON DEEMAND)
     Route: 048
     Dates: start: 2004
  3. NOVALGIN [Concomitant]
     Active Substance: METAMIZOLE SODIUM
     Indication: DIVERTICULITIS
     Dosage: 1 G, QD
     Route: 042
     Dates: start: 20160812, end: 20160812
  4. AIN457 [Suspect]
     Active Substance: SECUKINUMAB
     Indication: PSORIASIS
     Dosage: 300 MG,
     Route: 058
     Dates: start: 20160621, end: 20160818
  5. DICLOFENAC [Concomitant]
     Active Substance: DICLOFENAC
     Indication: PSORIASIS
     Dosage: 50 MG, (ON DEEMAND)
     Route: 048
     Dates: start: 2002
  6. IBUPROFEN. [Concomitant]
     Active Substance: IBUPROFEN
     Indication: DIVERTICULITIS
  7. DICLOFENAC [Concomitant]
     Active Substance: DICLOFENAC
     Indication: DIVERTICULITIS

REACTIONS (2)
  - Condition aggravated [Recovering/Resolving]
  - Intervertebral disc protrusion [Recovering/Resolving]

NARRATIVE: CASE EVENT DATE: 20160908
